FAERS Safety Report 15617004 (Version 1)
Quarter: 2018Q4

REPORT INFORMATION
  Report Type: Spontaneous
  Country: US (occurrence: US)
  Receive Date: 20181109
  Receipt Date: 20181109
  Transmission Date: 20190205
  Serious: No
  Sender: FDA-Public Use
  Company Number: None

PATIENT
  Age: 82 Year
  Sex: Male
  Weight: 90.72 kg

DRUGS (5)
  1. PROLIA [Suspect]
     Active Substance: DENOSUMAB
     Indication: SENILE OSTEOPOROSIS
     Dosage: OTHER FREQUENCY:EVERY 6 MONTHS AS ;?
     Route: 058
     Dates: start: 201808
  2. PROLIA [Suspect]
     Active Substance: DENOSUMAB
     Indication: SENILE OSTEOPOROSIS
  3. ELIGARD [Suspect]
     Active Substance: LEUPROLIDE ACETATE
     Indication: SENILE OSTEOPOROSIS
     Dosage: OTHER FREQUENCY:EVERY 6 MONTHS AS ;?
     Route: 058
     Dates: start: 201704
  4. ELIGARD [Suspect]
     Active Substance: LEUPROLIDE ACETATE
     Indication: PROSTATE CANCER
     Dosage: OTHER FREQUENCY:EVERY 6 MONTHS AS ;?
     Route: 058
     Dates: start: 201704
  5. PROLIA [Suspect]
     Active Substance: DENOSUMAB
     Indication: PROSTATE CANCER
     Dosage: OTHER FREQUENCY:EVERY 6 MONTHS AS ;?
     Route: 058
     Dates: start: 201808

REACTIONS (2)
  - Shoulder operation [None]
  - Spinal operation [None]
